FAERS Safety Report 11649552 (Version 3)
Quarter: 2015Q4

REPORT INFORMATION
  Report Type: Spontaneous
  Country: IT (occurrence: IT)
  Receive Date: 20151021
  Receipt Date: 20151207
  Transmission Date: 20160304
  Serious: Yes (Hospitalization)
  Sender: FDA-Public Use
  Company Number: IT-BAYER-2015-443457

PATIENT
  Age: 91 Year
  Sex: Female

DRUGS (9)
  1. COUMADIN [Interacting]
     Active Substance: WARFARIN SODIUM
     Indication: ATRIAL FIBRILLATION
     Route: 048
  2. LASIX [Concomitant]
     Active Substance: FUROSEMIDE
  3. ZYLORIC [Concomitant]
     Active Substance: ALLOPURINOL
  4. CATAPRESAN [Concomitant]
     Active Substance: CLONIDINE
  5. CARDIOASPIRIN [Suspect]
     Active Substance: ASPIRIN
     Indication: THROMBOSIS PROPHYLAXIS
     Dosage: 100 MG, DAILY DOSE
     Route: 048
  6. SOTALEX [Concomitant]
     Active Substance: SOTALOL
     Dosage: UNK
  7. OMEPRAZOLE. [Concomitant]
     Active Substance: OMEPRAZOLE
  8. LUVION [Concomitant]
     Active Substance: CANRENONE
  9. TORVAST [Concomitant]
     Active Substance: ATORVASTATIN

REACTIONS (3)
  - Labelled drug-drug interaction medication error [Recovered/Resolved]
  - Weight increased [Recovered/Resolved]
  - Metrorrhagia [Recovered/Resolved]

NARRATIVE: CASE EVENT DATE: 20150524
